FAERS Safety Report 8096657-7 (Version None)
Quarter: 2012Q1

REPORT INFORMATION
  Report Type: 
  Country: None (occurrence: None)
  Receive Date: 20120129
  Receipt Date: 20111201
  Transmission Date: 20120608
  Serious: No
  Sender: FDA-Public Use
  Company Number: US-ABBOTT-11P-163-0880264-00

PATIENT
  Age: 27 Year
  Sex: Female

DRUGS (4)
  1. HUMIRA [Suspect]
     Indication: CROHN'S DISEASE
     Dates: start: 20110902
  2. IV IRON THERAPY [Concomitant]
     Indication: PRODUCT USED FOR UNKNOWN INDICATION
     Dosage: FOR 7 WEEKS
     Route: 042
  3. ENTOCORT EC [Concomitant]
     Indication: CROHN'S DISEASE
  4. MERCAPTOPURINE [Concomitant]
     Indication: PRODUCT USED FOR UNKNOWN INDICATION
     Dosage: STOPPED WHILE ON VACATION, WILL RESUME IN 2 DAYS.

REACTIONS (4)
  - DRUG EFFECT PROLONGED [None]
  - ABDOMINAL PAIN [None]
  - CHEST PAIN [None]
  - TOOTH EXTRACTION [None]
